FAERS Safety Report 14954717 (Version 1)
Quarter: 2018Q2

REPORT INFORMATION
  Report Type: Spontaneous
  Country: US (occurrence: US)
  Receive Date: 20180530
  Receipt Date: 20180530
  Transmission Date: 20180711
  Serious: Yes (Hospitalization)
  Sender: FDA-Public Use
  Company Number: US-ACTELION-A-NJ2018-172942

PATIENT
  Age: 65 Year
  Sex: Female
  Weight: 71.2 kg

DRUGS (1)
  1. VELETRI [Suspect]
     Active Substance: EPOPROSTENOL
     Indication: PULMONARY ARTERIAL HYPERTENSION
     Dosage: 39.5 NG/KG, PER MIN
     Route: 042

REACTIONS (8)
  - Oxygen saturation decreased [Unknown]
  - Nausea [Unknown]
  - Dyspnoea [Unknown]
  - Drug dose omission [Unknown]
  - Device damage [Unknown]
  - Catheter management [Unknown]
  - Hyperhidrosis [Unknown]
  - Oxygen saturation abnormal [Unknown]

NARRATIVE: CASE EVENT DATE: 20180516
